FAERS Safety Report 4830110-6 (Version None)
Quarter: 2005Q4

REPORT INFORMATION
  Report Type: 
  Country: None (occurrence: None)
  Receive Date: 20051114
  Receipt Date: 20051027
  Transmission Date: 20060501
  Serious: Yes (Life-Threatening, Hospitalization)
  Sender: FDA-Public Use
  Company Number: DE-2005-008879

PATIENT
  Age: 41 Year
  Sex: Female

DRUGS (1)
  1. BETAFERON(INTERFERONA BETA - 1 B) INJECTION, 250UG [Suspect]
     Indication: MULTIPLE SCLEROSIS
     Dosage: 1 AMP, EVERY 2D, SUBCUTANEOUS
     Route: 058
     Dates: start: 20041101, end: 20050606

REACTIONS (1)
  - RENAL CELL CARCINOMA STAGE UNSPECIFIED [None]
